FAERS Safety Report 8600953-1 (Version None)
Quarter: 2012Q3

REPORT INFORMATION
  Report Type: 
  Country: None (occurrence: None)
  Receive Date: 20120817
  Receipt Date: 20120814
  Transmission Date: 20120928
  Serious: Yes (Hospitalization, Other)
  Sender: FDA-Public Use
  Company Number: US-AMGEN-USASP2012051729

PATIENT
  Age: 74 Year
  Sex: Female

DRUGS (1)
  1. ENBREL [Suspect]
     Indication: RHEUMATOID ARTHRITIS
     Dosage: 50 MG, QWK
     Dates: start: 20030501, end: 20120625

REACTIONS (5)
  - COUGH [None]
  - RALES [None]
  - KNEE ARTHROPLASTY [None]
  - CHRONIC OBSTRUCTIVE PULMONARY DISEASE [None]
  - IDIOPATHIC PULMONARY FIBROSIS [None]
